FAERS Safety Report 11020158 (Version 1)
Quarter: 2015Q2

REPORT INFORMATION
  Report Type: Spontaneous
  Country: CN (occurrence: HK)
  Receive Date: 20150413
  Receipt Date: 20150413
  Transmission Date: 20150821
  Serious: Yes (Hospitalization, Other)
  Sender: FDA-Public Use
  Company Number: CN-JNJFOC-20150400679

PATIENT
  Age: 30 Year
  Sex: Male

DRUGS (2)
  1. PARACETAMOL [Suspect]
     Active Substance: ACETAMINOPHEN
     Indication: COUGH
     Dosage: 500 MG 4 TIMES A DAY FOR TWO DAYS
     Route: 065
  2. PARACETAMOL [Suspect]
     Active Substance: ACETAMINOPHEN
     Indication: PYREXIA
     Dosage: 500 MG 4 TIMES A DAY FOR TWO DAYS
     Route: 065

REACTIONS (5)
  - Nausea [Unknown]
  - Abdominal distension [Unknown]
  - Hepatitis acute [Unknown]
  - Product use issue [Unknown]
  - Malaise [Unknown]
